FAERS Safety Report 9806777 (Version 1)
Quarter: 2014Q1

REPORT INFORMATION
  Report Type: Spontaneous
  Country: US (occurrence: US)
  Receive Date: 20140109
  Receipt Date: 20140109
  Transmission Date: 20141002
  Serious: No
  Sender: FDA-Public Use
  Company Number: US-ABBVIE-13P-163-1166770-00

PATIENT
  Sex: 0

DRUGS (3)
  1. HYDROCODONE [Suspect]
     Indication: PRODUCT USED FOR UNKNOWN INDICATION
  2. ADVIL [Concomitant]
     Indication: PRODUCT USED FOR UNKNOWN INDICATION
  3. CODEINE PHOSPHATE [Concomitant]
     Indication: PRODUCT USED FOR UNKNOWN INDICATION

REACTIONS (4)
  - Nephropathy [Unknown]
  - Foot fracture [Unknown]
  - Drug ineffective [Unknown]
  - Glomerular filtration rate decreased [Unknown]
